FAERS Safety Report 4995644-2 (Version None)
Quarter: 2006Q2

REPORT INFORMATION
  Report Type: 
  Country: None (occurrence: None)
  Receive Date: 20060508
  Receipt Date: 20060425
  Transmission Date: 20061013
  Serious: Yes (Life-Threatening)
  Sender: FDA-Public Use
  Company Number: US-NOVOPROD-252672

PATIENT
  Age: 57 Year
  Sex: Female
  Weight: 53 kg

DRUGS (3)
  1. NOVOLOG [Suspect]
     Indication: INSULIN-REQUIRING TYPE II DIABETES MELLITUS
     Dosage: 15 IU, QD
     Route: 058
     Dates: start: 20040101, end: 20040101
  2. CARDIAZEM [Concomitant]
     Indication: HYPERTENSION
     Route: 048
  3. ZYRTEC [Concomitant]
     Indication: SEASONAL ALLERGY
     Dosage: UNK, UNK
     Route: 048

REACTIONS (1)
  - LOSS OF CONSCIOUSNESS [None]
